FAERS Safety Report 6701042 (Version 3)
Quarter: 2020Q3

REPORT INFORMATION
  Report Type: Spontaneous
  Country: PT (occurrence: PT)
  Receive Date: 20080716
  Receipt Date: 20200826
  Transmission Date: 20201103
  Serious: Yes (Hospitalization, Other)
  Sender: FDA-Public Use
  Company Number: PT-BAYER-200821996GPV

PATIENT
  Age: 53 Year
  Sex: Male

DRUGS (19)
  1. ACYCLOVIR [ACICLOVIR] [Concomitant]
     Active Substance: ACYCLOVIR
     Dosage: UNK UNK,UNK
     Route: 065
  2. MAGNESIUM [Concomitant]
     Active Substance: MAGNESIUM
     Indication: PRODUCT USED FOR UNKNOWN INDICATION
     Dosage: UNK UNK,UNK
     Route: 065
  3. FLUDARABINE PHOSPHATE. [Suspect]
     Active Substance: FLUDARABINE PHOSPHATE
     Indication: BONE MARROW CONDITIONING REGIMEN
  4. CYCLOSPORINE. [Suspect]
     Active Substance: CYCLOSPORINE
     Dosage: TAPERED
  5. CYCLOSPORINE. [Suspect]
     Active Substance: CYCLOSPORINE
     Dosage: 50 MG, Q12H
  6. MIANSERIN [Concomitant]
     Active Substance: MIANSERIN
     Dosage: UNK UNK,UNK
     Route: 065
  7. BUSULFAN. [Suspect]
     Active Substance: BUSULFAN
     Indication: BONE MARROW CONDITIONING REGIMEN
  8. ENALAPRIL [Concomitant]
     Active Substance: ENALAPRIL
     Dosage: 20 MG,QD
     Route: 065
  9. FLUDARABINE PHOSPHATE. [Suspect]
     Active Substance: FLUDARABINE PHOSPHATE
     Indication: STEM CELL TRANSPLANT
     Dosage: UNK
     Dates: start: 200512
  10. PREDNISOLONE. [Suspect]
     Active Substance: PREDNISOLONE
     Indication: GRAFT VERSUS HOST DISEASE IN SKIN
  11. BISOPROLOL [Concomitant]
     Active Substance: BISOPROLOL
     Dosage: 5 MG,QD
     Route: 065
  12. PREDNISOLONE. [Suspect]
     Active Substance: PREDNISOLONE
     Dosage: TAPERED
  13. COTRIMOXAZOLE [Concomitant]
     Active Substance: SULFAMETHOXAZOLE\TRIMETHOPRIM
     Dosage: 960 MG,TIW
     Route: 065
  14. METHOTREXATE. [Suspect]
     Active Substance: METHOTREXATE
     Indication: PROPHYLAXIS AGAINST GRAFT VERSUS HOST DISEASE
     Dosage: UNK
     Dates: start: 200512
  15. PREDNISOLONE. [Suspect]
     Active Substance: PREDNISOLONE
     Dosage: 30 MG, QOD
  16. MIANSERIN [Concomitant]
     Active Substance: MIANSERIN
     Dosage: UNK
     Route: 065
  17. FOLATE SODIUM [Concomitant]
     Active Substance: FOLATE SODIUM
     Indication: PRODUCT USED FOR UNKNOWN INDICATION
     Dosage: UNK UNK,UNK
     Route: 065
  18. BUSULFAN. [Suspect]
     Active Substance: BUSULFAN
     Indication: STEM CELL TRANSPLANT
     Dosage: UNK
     Dates: start: 200512
  19. CYCLOSPORINE. [Suspect]
     Active Substance: CYCLOSPORINE
     Indication: PROPHYLAXIS AGAINST GRAFT VERSUS HOST DISEASE
     Dosage: UNK
     Dates: start: 200512

REACTIONS (38)
  - Graft versus host disease in eye [Recovering/Resolving]
  - Hypoalbuminaemia [Recovered/Resolved]
  - Chronic graft versus host disease [Recovered/Resolved]
  - Blood bilirubin increased [Recovered/Resolved]
  - Haptoglobin decreased [Recovered/Resolved]
  - Off label use [Unknown]
  - Poikiloderma [Recovered/Resolved]
  - Reticulocytosis [Recovered/Resolved]
  - Meningioma [Recovered/Resolved]
  - Glomerulonephritis minimal lesion [Recovered/Resolved]
  - Dry mouth [Recovered/Resolved]
  - Alanine aminotransferase increased [Recovered/Resolved]
  - Leukocyturia [Recovered/Resolved]
  - Rash maculo-papular [Recovered/Resolved]
  - Generalised oedema [Recovered/Resolved]
  - Deep vein thrombosis [Unknown]
  - Aspartate aminotransferase increased [Recovered/Resolved]
  - Lichenoid keratosis [Recovered/Resolved]
  - Thrombocytopenia [Recovered/Resolved]
  - Eye pain [Unknown]
  - Gamma-glutamyltransferase increased [Recovered/Resolved]
  - Blood alkaline phosphatase increased [Recovered/Resolved]
  - Blood lactate dehydrogenase increased [Recovered/Resolved]
  - Skin hypertrophy [Recovered/Resolved]
  - 5^nucleotidase increased [Recovered/Resolved]
  - Blood bilirubin unconjugated increased [Recovered/Resolved]
  - Nephrotic syndrome [Recovered/Resolved]
  - Withdrawal syndrome [Recovered/Resolved]
  - Renal tubular necrosis [Recovered/Resolved]
  - Anaemia [Recovered/Resolved]
  - Acute kidney injury [Recovered/Resolved]
  - Acute graft versus host disease in skin [Recovered/Resolved]
  - Diplopia [Recovered/Resolved]
  - Thrombosis [Unknown]
  - Cytomegalovirus infection [Recovered/Resolved]
  - Hypercholesterolaemia [Recovered/Resolved]
  - Dry eye [Unknown]
  - Proteinuria [Recovered/Resolved]
